FAERS Safety Report 12863811 (Version 10)
Quarter: 2019Q3

REPORT INFORMATION
  Report Type: Report from Study
  Country: CA (occurrence: CA)
  Receive Date: 20161019
  Receipt Date: 20190904
  Transmission Date: 20191004
  Serious: Yes (Hospitalization, Other)
  Sender: FDA-Public Use
  Company Number: CA-TAKEDA-2016TUS011913

PATIENT
  Age: 80 Year
  Sex: Female

DRUGS (8)
  1. VEDOLIZUMAB [Suspect]
     Active Substance: VEDOLIZUMAB
     Dosage: 300 MILLIGRAM
     Route: 042
  2. PROLIA [Concomitant]
     Active Substance: DENOSUMAB
     Dosage: UNK UNK, Q6MONTHS
     Dates: start: 20160601
  3. MOXIFLOXACIN. [Suspect]
     Active Substance: MOXIFLOXACIN
     Indication: BRONCHITIS
     Dosage: 400 MILLIGRAM, QD
     Route: 065
     Dates: start: 20160927, end: 20161004
  4. PREDNISONE. [Concomitant]
     Active Substance: PREDNISONE
     Dosage: UNK
  5. VEDOLIZUMAB [Suspect]
     Active Substance: VEDOLIZUMAB
     Dosage: 300 MILLIGRAM
     Route: 042
     Dates: start: 20190322
  6. VEDOLIZUMAB [Suspect]
     Active Substance: VEDOLIZUMAB
     Dosage: 300 MILLIGRAM
     Route: 042
     Dates: end: 20190728
  7. VEDOLIZUMAB [Suspect]
     Active Substance: VEDOLIZUMAB
     Indication: CROHN^S DISEASE
     Dosage: 300 MILLIGRAM
     Route: 042
     Dates: start: 20160621
  8. AZATHIOPRINE. [Concomitant]
     Active Substance: AZATHIOPRINE
     Dosage: UNK
     Dates: start: 2012

REACTIONS (15)
  - Dehydration [Unknown]
  - Eye irritation [Unknown]
  - Lung infection [Not Recovered/Not Resolved]
  - Deafness [Unknown]
  - Intestinal obstruction [Unknown]
  - Product administration error [Unknown]
  - Eye pain [Unknown]
  - Fatigue [Unknown]
  - Bronchitis [Not Recovered/Not Resolved]
  - Conjunctivitis [Recovered/Resolved]
  - Sinusitis [Recovered/Resolved]
  - Dizziness [Unknown]
  - Crohn^s disease [Not Recovered/Not Resolved]
  - Ear pain [Recovered/Resolved]
  - Headache [Unknown]

NARRATIVE: CASE EVENT DATE: 2016
